FAERS Safety Report 21968639 (Version 1)
Quarter: 2023Q1

REPORT INFORMATION
  Report Type: Spontaneous
  Country: US (occurrence: None)
  Receive Date: 20230207
  Receipt Date: 20230207
  Transmission Date: 20230417
  Serious: Yes (Disabling, Other)
  Sender: FDA-Public Use
  Company Number: None

PATIENT
  Age: 21 Year
  Sex: Male
  Weight: 81 kg

DRUGS (6)
  1. LEXAPRO [Suspect]
     Active Substance: ESCITALOPRAM OXALATE
     Indication: Anxiety disorder
     Dosage: OTHER QUANTITY : 1 TABLET(S);?FREQUENCY : AT BEDTIME;?
     Route: 048
     Dates: start: 20180120, end: 20221220
  2. FISH OIL [Concomitant]
     Active Substance: FISH OIL
  3. VITAMIN D [Concomitant]
     Active Substance: VITAMIN D NOS
  4. ZINC [Concomitant]
     Active Substance: ZINC
  5. VITAMIN C [Concomitant]
     Active Substance: ASCORBIC ACID
  6. VITAMINS [Concomitant]
     Active Substance: VITAMINS

REACTIONS (6)
  - Sexual dysfunction [None]
  - Sleep disorder [None]
  - Pelvic floor dysfunction [None]
  - Nonspecific reaction [None]
  - Anosmia [None]
  - Unevaluable event [None]

NARRATIVE: CASE EVENT DATE: 20180201
